FAERS Safety Report 10713424 (Version 5)
Quarter: 2015Q2

REPORT INFORMATION
  Report Type: Spontaneous
  Country: CA (occurrence: CA)
  Receive Date: 20150115
  Receipt Date: 20150506
  Transmission Date: 20150821
  Serious: Yes (Other)
  Sender: FDA-Public Use
  Company Number: CA-GLAXOSMITHKLINE-CA2015GSK001515

PATIENT
  Sex: Female
  Weight: 79 kg

DRUGS (7)
  1. BENLYSTA [Suspect]
     Active Substance: BELIMUMAB
     Indication: SYSTEMIC LUPUS ERYTHEMATOSUS
     Dosage: 790 MG, Z
     Route: 042
     Dates: start: 20140819
  2. MYCOPHENOLATE [Concomitant]
     Active Substance: MYCOPHENOLIC ACID
     Indication: MYOSITIS
  3. BENLYSTA [Suspect]
     Active Substance: BELIMUMAB
     Indication: ARTHRITIS
  4. SALAZOPYRIN [Concomitant]
     Active Substance: SULFASALAZINE
     Indication: PRODUCT USED FOR UNKNOWN INDICATION
  5. BELIMUMAB [Suspect]
     Active Substance: BELIMUMAB
     Indication: PRODUCT USED FOR UNKNOWN INDICATION
     Dosage: UNK
     Dates: start: 201406
  6. HYDROXYCHLOROQUINE [Concomitant]
     Active Substance: HYDROXYCHLOROQUINE
     Indication: PRODUCT USED FOR UNKNOWN INDICATION
  7. METHOTREXATE [Concomitant]
     Active Substance: METHOTREXATE
     Indication: MYOSITIS

REACTIONS (15)
  - Polymyositis [Unknown]
  - Skin disorder [Unknown]
  - Malaise [Unknown]
  - Bronchitis [Unknown]
  - Disease progression [Unknown]
  - Liver disorder [Unknown]
  - Condition aggravated [Unknown]
  - Crying [Unknown]
  - Systemic sclerosis [Unknown]
  - Raynaud^s phenomenon [Unknown]
  - Depression [Unknown]
  - Mixed connective tissue disease [Unknown]
  - Musculoskeletal disorder [Unknown]
  - Skin discolouration [Unknown]
  - Cough [Unknown]

NARRATIVE: CASE EVENT DATE: 2015
